FAERS Safety Report 8490117-7 (Version None)
Quarter: 2012Q3

REPORT INFORMATION
  Report Type: 
  Country: None (occurrence: None)
  Receive Date: 20120705
  Receipt Date: 20120628
  Transmission Date: 20120928
  Serious: Yes (Hospitalization)
  Sender: FDA-Public Use
  Company Number: US-JNJFOC-20120517518

PATIENT
  Sex: Female
  Weight: 61.69 kg

DRUGS (2)
  1. LAMOTRIGINE [Concomitant]
     Route: 065
  2. INVEGA SUSTENNA [Suspect]
     Indication: SCHIZOPHRENIA
     Route: 030
     Dates: start: 20110101

REACTIONS (6)
  - EYE DISORDER [None]
  - WEIGHT DECREASED [None]
  - PRODUCT QUALITY ISSUE [None]
  - FEELING ABNORMAL [None]
  - DYSPNOEA [None]
  - EYE INJURY [None]
